FAERS Safety Report 4729937-0 (Version None)
Quarter: 2005Q3

REPORT INFORMATION
  Report Type: 
  Country: None (occurrence: None)
  Receive Date: 20050729
  Receipt Date: 20050729
  Transmission Date: 20060218
  Serious: No
  Sender: FDA-Public Use
  Company Number: None

PATIENT
  Age: 82 Year
  Sex: Male
  Weight: 77 kg

DRUGS (2)
  1. FUROSEMIDE [Suspect]
     Indication: DYSPNOEA
     Dosage: IVP 80 MG 1X [7/4/05 ONLY]
     Route: 042
     Dates: start: 20050704
  2. FUROSEMIDE [Suspect]
     Indication: RALES
     Dosage: IVP 80 MG 1X [7/4/05 ONLY]
     Route: 042
     Dates: start: 20050704

REACTIONS (1)
  - HYPOKALAEMIA [None]
